FAERS Safety Report 6154329-X (Version None)
Quarter: 2009Q2

REPORT INFORMATION
  Report Type: 
  Country: None (occurrence: None)
  Receive Date: 20090414
  Receipt Date: 20090331
  Transmission Date: 20091009
  Serious: Yes (Hospitalization, Other)
  Sender: FDA-Public Use
  Company Number: US-GENENTECH-280281

PATIENT
  Sex: Female

DRUGS (2)
  1. HERCEPTIN [Suspect]
     Indication: DRUG USE FOR UNKNOWN INDICATION
     Dosage: UNK
     Route: 065
     Dates: start: 20080701, end: 20090101
  2. CAPECITABINE [Suspect]
     Indication: BREAST CANCER
     Dosage: 1500 MG, BID
     Route: 048
     Dates: start: 20080719, end: 20090101

REACTIONS (5)
  - BACTERIAL INFECTION [None]
  - BREAST CANCER [None]
  - DRUG INEFFECTIVE [None]
  - PALMAR-PLANTAR ERYTHRODYSAESTHESIA SYNDROME [None]
  - THROMBOSIS [None]
